FAERS Safety Report 18923484 (Version 2)
Quarter: 2021Q2

REPORT INFORMATION
  Report Type: Report from Study
  Country: US (occurrence: US)
  Receive Date: 20210222
  Receipt Date: 20210421
  Transmission Date: 20210717
  Serious: Yes (Other)
  Sender: FDA-Public Use
  Company Number: US-BIOGEN-2021BI00978354

PATIENT
  Sex: Female

DRUGS (1)
  1. TYSABRI [Suspect]
     Active Substance: NATALIZUMAB
     Indication: MULTIPLE SCLEROSIS
     Dosage: INFUSED OVER 1 HOUR
     Route: 042
     Dates: start: 20200911

REACTIONS (6)
  - Psychomotor hyperactivity [Unknown]
  - Central nervous system lesion [Not Recovered/Not Resolved]
  - Psychotic disorder [Unknown]
  - Neuropathy peripheral [Not Recovered/Not Resolved]
  - Stress [Unknown]
  - Iatrogenic injury [Not Recovered/Not Resolved]
